FAERS Safety Report 22103802 (Version 1)
Quarter: 2023Q1

REPORT INFORMATION
  Report Type: Spontaneous
  Country: JP (occurrence: JP)
  Receive Date: 20230316
  Receipt Date: 20230316
  Transmission Date: 20230417
  Serious: Yes (Hospitalization, Other)
  Sender: FDA-Public Use
  Company Number: JP-BAXTER-2023BAX012639

PATIENT
  Age: 54 Year
  Sex: Female
  Weight: 55.2 kg

DRUGS (4)
  1. CYCLOPHOSPHAMIDE [Suspect]
     Active Substance: CYCLOPHOSPHAMIDE
     Indication: Breast cancer
     Dosage: AC THERAPY, PERIPHERAL 912 MG (600 MG/M2)
     Route: 042
     Dates: start: 2021
  2. CYCLOPHOSPHAMIDE [Suspect]
     Active Substance: CYCLOPHOSPHAMIDE
     Dosage: THIRD CYCLE OF AC THERAPY
     Route: 042
     Dates: start: 20210507
  3. ADRIAMYCIN [Suspect]
     Active Substance: DOXORUBICIN HYDROCHLORIDE
     Indication: Breast cancer
     Dosage: AC THERAPY, PERIPHERAL 91.2 MG (60 MG/M2)
     Route: 042
     Dates: start: 2021
  4. ADRIAMYCIN [Suspect]
     Active Substance: DOXORUBICIN HYDROCHLORIDE
     Dosage: THIRD CYCLE OF AC THERAPY
     Route: 042
     Dates: start: 20210507

REACTIONS (5)
  - Type 1 diabetes mellitus [Recovering/Resolving]
  - Polydipsia [Recovering/Resolving]
  - Polyuria [Recovering/Resolving]
  - Weight decreased [Recovering/Resolving]
  - Decreased appetite [Unknown]

NARRATIVE: CASE EVENT DATE: 20210501
